FAERS Safety Report 5427927-6 (Version None)
Quarter: 2007Q3

REPORT INFORMATION
  Report Type: 
  Country: None (occurrence: None)
  Receive Date: 20070828
  Receipt Date: 20070815
  Transmission Date: 20080115
  Serious: Yes (Other)
  Sender: FDA-Public Use
  Company Number: US-PFIZER INC-2007044334

PATIENT
  Sex: Female

DRUGS (2)
  1. CELEBREX [Suspect]
     Indication: ARTHRITIS
  2. CELEBREX [Suspect]
     Indication: OSTEOARTHRITIS

REACTIONS (4)
  - ANGINA UNSTABLE [None]
  - CARDIAC VALVE DISEASE [None]
  - CARDIOMEGALY [None]
  - MYOCARDIAL INFARCTION [None]
